FAERS Safety Report 15788429 (Version 2)
Quarter: 2021Q3

REPORT INFORMATION
  Report Type: Report from Study
  Country: US (occurrence: US)
  Receive Date: 20190104
  Receipt Date: 20210723
  Transmission Date: 20211014
  Serious: Yes (Other)
  Sender: FDA-Public Use
  Company Number: US-ACADIA PHARMACEUTICALS INC.-ACA-2019-011317

PATIENT
  Sex: Female

DRUGS (3)
  1. NUPLAZID [Suspect]
     Active Substance: PIMAVANSERIN TARTRATE
     Indication: DELUSION
     Dosage: 34 MILLIGRAM, QD
     Route: 065
  2. NUPLAZID [Suspect]
     Active Substance: PIMAVANSERIN TARTRATE
     Indication: HALLUCINATION
     Dosage: 34 MG, QD
     Route: 048
     Dates: start: 2018
  3. NUPLAZID [Suspect]
     Active Substance: PIMAVANSERIN TARTRATE
     Indication: PARKINSON^S DISEASE PSYCHOSIS

REACTIONS (4)
  - Pneumonia [Unknown]
  - Nonspecific reaction [Unknown]
  - Hallucination [Not Recovered/Not Resolved]
  - Product dose omission issue [Not Recovered/Not Resolved]
